FAERS Safety Report 5954759-2 (Version None)
Quarter: 2008Q4

REPORT INFORMATION
  Report Type: 
  Country: None (occurrence: None)
  Receive Date: 20081117
  Receipt Date: 20081108
  Transmission Date: 20090506
  Serious: Yes (Other)
  Sender: FDA-Public Use
  Company Number: GB-BAYER-200830111GPV

PATIENT
  Age: 39 Year
  Sex: Female

DRUGS (2)
  1. MIRENA [Suspect]
     Indication: MENORRHAGIA
     Route: 015
  2. MIRENA [Suspect]
     Route: 015

REACTIONS (3)
  - AMENORRHOEA [None]
  - ENDOMETRIAL CANCER STAGE I [None]
  - MENORRHAGIA [None]
